FAERS Safety Report 8555510-2 (Version None)
Quarter: 2012Q3

REPORT INFORMATION
  Report Type: 
  Country: None (occurrence: None)
  Receive Date: 20120731
  Receipt Date: 20120404
  Transmission Date: 20120928
  Serious: No
  Sender: FDA-Public Use
  Company Number: US-ASTRAZENECA-2011SE02324

PATIENT
  Age: 51 Year
  Sex: Female
  Weight: 72.6 kg

DRUGS (23)
  1. SEROQUEL [Suspect]
     Route: 048
  2. SEROQUEL [Suspect]
     Route: 048
  3. WELLBUTRIN [Concomitant]
  4. LAMICTAL [Concomitant]
  5. ADVAIR [Concomitant]
     Indication: ASTHMA
  6. SEROQUEL [Suspect]
     Dosage: CUT THE PILL INTO TWO
     Route: 048
  7. SEROQUEL [Suspect]
     Route: 048
  8. SEROQUEL [Suspect]
     Route: 048
  9. SEROQUEL [Suspect]
     Dosage: CUT THE PILL INTO TWO
     Route: 048
  10. ALBUTEROL [Concomitant]
     Indication: ASTHMA
  11. SEROQUEL [Suspect]
     Indication: SLEEP DISORDER
     Route: 048
     Dates: start: 20100101
  12. SEROQUEL [Suspect]
     Indication: BIPOLAR I DISORDER
     Route: 048
     Dates: start: 20100101
  13. ANTIVERT [Concomitant]
     Indication: VERTIGO
  14. SEROQUEL [Suspect]
     Indication: DEPRESSION
     Route: 048
     Dates: start: 20100101
  15. SEROQUEL [Suspect]
     Dosage: CUT THE PILL INTO TWO
     Route: 048
  16. SEROQUEL [Suspect]
     Route: 048
  17. BUTEROL [Concomitant]
  18. XANAX [Concomitant]
  19. SEROQUEL [Suspect]
     Route: 048
  20. CELEXA [Concomitant]
  21. SEROQUEL [Suspect]
     Route: 048
  22. SEROQUEL [Suspect]
     Route: 048
  23. SEROQUEL [Suspect]
     Route: 048

REACTIONS (4)
  - INTENTIONAL DRUG MISUSE [None]
  - OFF LABEL USE [None]
  - INSOMNIA [None]
  - TACHYPHRENIA [None]
